FAERS Safety Report 16082042 (Version 2)
Quarter: 2019Q2

REPORT INFORMATION
  Report Type: Spontaneous
  Country: US (occurrence: US)
  Receive Date: 20190317
  Receipt Date: 20190411
  Transmission Date: 20190711
  Serious: No
  Sender: FDA-Public Use
  Company Number: US-009507513-1903USA004988

PATIENT
  Age: 80 Year
  Sex: Female

DRUGS (1)
  1. ZOCOR [Suspect]
     Active Substance: SIMVASTATIN
     Dosage: QUANTITY 30, DAYS SUPPLY 30
     Route: 048

REACTIONS (3)
  - Muscular weakness [Recovered/Resolved]
  - Hyperlipidaemia [Recovered/Resolved]
  - Myalgia [Recovered/Resolved]
